FAERS Safety Report 6119775-9 (Version None)
Quarter: 2009Q1

REPORT INFORMATION
  Report Type: 
  Country: None (occurrence: None)
  Receive Date: 20090311
  Receipt Date: 20090225
  Transmission Date: 20090719
  Serious: Yes (Hospitalization)
  Sender: FDA-Public Use
  Company Number: PHO-2009-002 F-UP #1

PATIENT
  Age: 62 Year
  Sex: Male

DRUGS (3)
  1. PHOTOFRIN [Suspect]
     Indication: BARRETT'S OESOPHAGUS
     Dosage: 2 MG/KG (165 MG) IV ONE INJECTION
     Route: 042
     Dates: start: 20090210
  2. NEXIUM [Concomitant]
  3. METFORMIN [Concomitant]

REACTIONS (6)
  - ATRIOVENTRICULAR BLOCK FIRST DEGREE [None]
  - BRADYCARDIA [None]
  - DIZZINESS [None]
  - HYPOTENSION [None]
  - INFUSION RELATED REACTION [None]
  - SYNCOPE [None]
